FAERS Safety Report 4398930-2 (Version None)
Quarter: 2004Q3

REPORT INFORMATION
  Report Type: 
  Country: None (occurrence: None)
  Receive Date: 20040712
  Receipt Date: 20040701
  Transmission Date: 20050211
  Serious: Yes (Hospitalization)
  Sender: FDA-Public Use
  Company Number: 2000-BL-00106

PATIENT
  Age: 55 Year
  Sex: Male

DRUGS (6)
  1. VIRAMUNE [Suspect]
     Indication: HIV INFECTION
     Dosage: 200 MG (200 MG, 1 IN 24 HR), PO; 400 M G (200 MG, 1 IN 12 HR), PO
     Route: 048
     Dates: start: 20000323, end: 20000406
  2. VIRAMUNE [Suspect]
     Indication: HIV INFECTION
     Dosage: 200 MG (200 MG, 1 IN 24 HR), PO; 400 M G (200 MG, 1 IN 12 HR), PO
     Route: 048
     Dates: start: 20000407, end: 20010530
  3. HYDROXYUREA [Suspect]
     Indication: HIV INFECTION
     Dosage: 1000 MG (500 MG, BID), PO
     Route: 048
     Dates: start: 20000323, end: 20000515
  4. ZIDOVUDINE [Suspect]
     Indication: HIV INFECTION
     Dosage: 500 MG (250 MG, BID), PO
     Route: 048
     Dates: start: 20000323, end: 20000530
  5. LAMIVUDINE (LAMIVUDINE) [Concomitant]
  6. ABACAVIR (ABACAVIR) [Concomitant]

REACTIONS (2)
  - NEUTROPENIA [None]
  - PANCYTOPENIA [None]
